FAERS Safety Report 6554095-X (Version None)
Quarter: 2010Q1

REPORT INFORMATION
  Report Type: 
  Country: None (occurrence: None)
  Receive Date: 20100127
  Receipt Date: 20100115
  Transmission Date: 20100710
  Serious: Yes (Other)
  Sender: FDA-Public Use
  Company Number: US-ELI_LILLY_AND_COMPANY-US201001003593

PATIENT
  Sex: Female

DRUGS (2)
  1. CYMBALTA [Suspect]
     Dosage: 120 MG, DAILY (1/D)
     Dates: start: 20100107, end: 20100101
  2. CYMBALTA [Suspect]
     Dosage: 60 MG, UNK
     Dates: start: 20100101

REACTIONS (1)
  - FACIAL PALSY [None]
